FAERS Safety Report 9508034 (Version 2)
Quarter: 2014Q1

REPORT INFORMATION
  Report Type: Spontaneous
  Country: US (occurrence: None)
  Receive Date: 20130305
  Receipt Date: 20140306
  Transmission Date: 20141002
  Serious: Yes (Other)
  Sender: FDA-Public Use
  Company Number: 163-21880-12082501

PATIENT
  Age: 64 Year
  Sex: Male
  Weight: 83.01 kg

DRUGS (10)
  1. REVLIMID (LENALIDOMIDE) (25 MILLIGRAM, CAPSULES) [Suspect]
     Indication: PLASMA CELL MYELOMA
     Dosage: 25 MG, 21 TO 28 D, PO
     Route: 048
     Dates: start: 20100517
  2. ACYCLOVIR (ACICLOVIR) (ACICLOVIR) [Concomitant]
  3. BACTRIM [Concomitant]
  4. DECADRON (DEXAMETHASONE) [Concomitant]
  5. LORAZEPAM [Concomitant]
  6. LOVENOX (HEPARIN-FRACTION, SODIUM SALT) [Concomitant]
  7. OMEPRAZOLE [Concomitant]
  8. SUPER B COMPLEX (VITAMIN-B-KOMPLEX STANDARD) [Concomitant]
  9. ZOMETA (ZOLEDRONIC ACID) [Concomitant]
  10. ENOXAPARIN [Concomitant]

REACTIONS (10)
  - Large intestine polyp [None]
  - Gastrointestinal disorder [None]
  - Weight decreased [None]
  - Fatigue [None]
  - Localised infection [None]
  - Infection [None]
  - Colon adenoma [None]
  - Haemorrhoidal haemorrhage [None]
  - Diverticulitis [None]
  - Bursitis infective [None]
